FAERS Safety Report 8780128 (Version 1)
Quarter: 2012Q4

REPORT INFORMATION
  Report Type: Spontaneous
  Country: US (occurrence: None)
  Receive Date: 20120831
  Receipt Date: 20120831
  Transmission Date: 20130627
  Serious: Yes (Hospitalization, Other)
  Sender: FDA-Public Use
  Company Number: None

PATIENT
  Age: 61 Year
  Sex: Female
  Weight: 86.4 kg

DRUGS (1)
  1. LEVAQUIN [Suspect]
     Indication: URINARY TRACT  INFECTION
     Route: 048
     Dates: start: 20120729, end: 20120805

REACTIONS (7)
  - Fall [None]
  - Dyskinesia [None]
  - Gait disturbance [None]
  - Laceration [None]
  - Heart rate irregular [None]
  - Gait disturbance [None]
  - Wound [None]
